FAERS Safety Report 9253911 (Version 1)
Quarter: 2013Q2

REPORT INFORMATION
  Report Type: Spontaneous
  Country: US (occurrence: None)
  Receive Date: 20130419
  Receipt Date: 20130419
  Transmission Date: 20140414
  Serious: Yes (Hospitalization, Other)
  Sender: FDA-Public Use
  Company Number: KAD201304-000471

PATIENT
  Age: 55 Year
  Sex: Male

DRUGS (2)
  1. RIBAVIRIN (RIBAVIRIN) [Suspect]
     Indication: HEPATITIS C
  2. PEGYLATED INTERFERON ALFA [Suspect]
     Indication: HEPATITIS C

REACTIONS (10)
  - Anaemia [None]
  - Insulin resistance [None]
  - Hyperglycaemia [None]
  - Hypoglycaemia [None]
  - Weight decreased [None]
  - Vision blurred [None]
  - Fatigue [None]
  - Asthenia [None]
  - Abdominal tenderness [None]
  - Cranial nerve disorder [None]
